FAERS Safety Report 5306868-9 (Version None)
Quarter: 2007Q2

REPORT INFORMATION
  Report Type: 
  Country: None (occurrence: None)
  Receive Date: 20070425
  Receipt Date: 20070416
  Transmission Date: 20071010
  Serious: Yes (Disabling)
  Sender: FDA-Public Use
  Company Number: BR-AVENTIS-200713503GDDC

PATIENT
  Sex: Female
  Weight: 40 kg

DRUGS (4)
  1. LANTUS [Suspect]
     Indication: DIABETES MELLITUS INSULIN-DEPENDENT
     Dosage: DOSE: UNK
     Route: 058
     Dates: start: 20050101, end: 20070101
  2. LANTUS [Suspect]
     Route: 058
     Dates: start: 20070416
  3. OPTIPEN (INSULIN PUMP) [Suspect]
     Dosage: DOSE: UNK
  4. DIENPAX [Concomitant]
     Dosage: DOSE QUANTITY: 1
     Route: 048
     Dates: start: 20000101

REACTIONS (11)
  - DIABETIC NEUROPATHY [None]
  - DIABETIC RETINOPATHY [None]
  - FATIGUE [None]
  - GASTROINTESTINAL INFECTION [None]
  - HEART RATE INCREASED [None]
  - HYPERGLYCAEMIA [None]
  - HYPOGLYCAEMIA [None]
  - MUSCULAR WEAKNESS [None]
  - NEURALGIA [None]
  - SALIVA ALTERED [None]
  - VISUAL DISTURBANCE [None]
